FAERS Safety Report 10143307 (Version 2)
Quarter: 2014Q3

REPORT INFORMATION
  Report Type: Spontaneous
  Country: US (occurrence: US)
  Receive Date: 20140430
  Receipt Date: 20140807
  Transmission Date: 20150326
  Serious: Yes (Other)
  Sender: FDA-Public Use
  Company Number: US-ASTRAZENECA-2014SE28103

PATIENT
  Age: 73 Year
  Sex: Male
  Weight: 97.5 kg

DRUGS (4)
  1. GENERIC SINGULAIR [Concomitant]
     Indication: CHOKING
     Route: 048
  2. SYMBICORT [Suspect]
     Active Substance: BUDESONIDE\FORMOTEROL FUMARATE DIHYDRATE
     Indication: CHRONIC OBSTRUCTIVE PULMONARY DISEASE
     Dosage: 160/4.5, 2 PUFFS BID
     Route: 055
     Dates: start: 2013
  3. GENERIC SINGULAIR [Concomitant]
     Indication: DYSPNOEA
     Route: 048
  4. GENERIC SINGULAIR [Concomitant]
     Indication: SINUSITIS
     Route: 048

REACTIONS (5)
  - Choking [Recovered/Resolved]
  - Dyspnoea [Unknown]
  - Off label use [Unknown]
  - Circumstance or information capable of leading to medication error [Unknown]
  - Foreign body [Unknown]

NARRATIVE: CASE EVENT DATE: 20140419
